FAERS Safety Report 19952380 (Version 10)
Quarter: 2024Q1

REPORT INFORMATION
  Report Type: Spontaneous
  Country: US (occurrence: US)
  Receive Date: 20211013
  Receipt Date: 20240117
  Transmission Date: 20240409
  Serious: Yes (Disabling, Other)
  Sender: FDA-Public Use
  Company Number: US-ORGANON-O2110USA000836

PATIENT
  Sex: Female

DRUGS (3)
  1. SINGULAIR [Suspect]
     Active Substance: MONTELUKAST SODIUM
     Indication: Asthma
     Dosage: 10 MG
     Route: 048
     Dates: start: 2008, end: 2021
  2. SINGULAIR [Suspect]
     Active Substance: MONTELUKAST SODIUM
     Indication: Hypersensitivity
  3. MONTELUKAST SODIUM [Suspect]
     Active Substance: MONTELUKAST SODIUM
     Dosage: 1 TABLET BY MOUTH ONCE DAILY
     Route: 048

REACTIONS (14)
  - Neuropsychological symptoms [Not Recovered/Not Resolved]
  - Migraine [Not Recovered/Not Resolved]
  - Hypothyroidism [Unknown]
  - Tremor [Not Recovered/Not Resolved]
  - Depression [Not Recovered/Not Resolved]
  - Obstructive sleep apnoea syndrome [Unknown]
  - Intervertebral disc degeneration [Not Recovered/Not Resolved]
  - Restless legs syndrome [Unknown]
  - Hip arthroplasty [Unknown]
  - Anxiety [Not Recovered/Not Resolved]
  - Epistaxis [Unknown]
  - Post-traumatic stress disorder [Unknown]
  - Headache [Unknown]
  - Exostosis [Unknown]

NARRATIVE: CASE EVENT DATE: 20090101
